FAERS Safety Report 9161100 (Version 2)
Quarter: 2013Q2

REPORT INFORMATION
  Report Type: Spontaneous
  Country: DE (occurrence: DE)
  Receive Date: 20130313
  Receipt Date: 20130528
  Transmission Date: 20140414
  Serious: Yes (Other)
  Sender: FDA-Public Use
  Company Number: GXKR2013DE001114

PATIENT
  Sex: Male
  Weight: 85 kg

DRUGS (7)
  1. ZOLPIDEM 1A PHARMA [Suspect]
     Indication: ANALGESIC THERAPY
     Dosage: 20 MG, QD
     Route: 048
  2. ZOLPIDEM 1A PHARMA [Suspect]
     Dosage: 5 MG, BID
     Route: 048
  3. ZOLPIDEM 1A PHARMA [Suspect]
     Dosage: 20 MG, UNK
     Route: 048
  4. DOXEPIN [Concomitant]
     Dosage: 50 MG, BID
     Route: 048
  5. TAVOR (LORAZEPAM) [Concomitant]
     Dosage: 0.5 MG, TID
     Route: 048
  6. OLANZAPINE [Concomitant]
     Dosage: 5 MG, BID
     Route: 048
  7. GABAPENTIN [Concomitant]
     Dosage: 300 MG, 5QD
     Route: 048

REACTIONS (7)
  - Intentional drug misuse [Not Recovered/Not Resolved]
  - Photophobia [Not Recovered/Not Resolved]
  - Stress [Not Recovered/Not Resolved]
  - Inadequate analgesia [Not Recovered/Not Resolved]
  - Inappropriate schedule of drug administration [Not Recovered/Not Resolved]
  - Intentional overdose [Not Recovered/Not Resolved]
  - Therapeutic response unexpected [Not Recovered/Not Resolved]
